FAERS Safety Report 4498793-0 (Version None)
Quarter: 2004Q4

REPORT INFORMATION
  Report Type: 
  Country: None (occurrence: None)
  Receive Date: 20041111
  Receipt Date: 20041101
  Transmission Date: 20050328
  Serious: Yes (Other)
  Sender: FDA-Public Use
  Company Number: 200413382JP

PATIENT
  Age: 32 Year
  Sex: Female

DRUGS (3)
  1. KETEK [Suspect]
     Indication: BRONCHITIS
     Route: 048
     Dates: start: 20041025, end: 20041028
  2. FLUTICASONE PROPIONATE [Concomitant]
     Dosage: DOSE: UNK
  3. KIPRES [Concomitant]
     Dosage: DOSE: UNK

REACTIONS (6)
  - EYELID OEDEMA [None]
  - FACIAL PAIN [None]
  - ORAL PAIN [None]
  - PAIN [None]
  - RESPIRATORY DISORDER [None]
  - STEVENS-JOHNSON SYNDROME [None]
